FAERS Safety Report 7355747-4 (Version None)
Quarter: 2011Q1

REPORT INFORMATION
  Report Type: 
  Country: None (occurrence: None)
  Receive Date: 20110316
  Receipt Date: 20110309
  Transmission Date: 20110831
  Serious: Yes (Hospitalization)
  Sender: FDA-Public Use
  Company Number: ES-ABBOTT-11P-144-0710186-00

PATIENT
  Age: 26 Year
  Sex: Female

DRUGS (4)
  1. IMUREL [Concomitant]
     Indication: ANORECTAL DISORDER
  2. HUMIRA [Suspect]
     Indication: PIGMENTATION DISORDER
     Route: 058
     Dates: start: 20080101, end: 20101201
  3. HUMIRA [Suspect]
  4. IMUREL [Concomitant]

REACTIONS (1)
  - FISTULA DISCHARGE [None]
